FAERS Safety Report 26218882 (Version 1)
Quarter: 2025Q4

REPORT INFORMATION
  Report Type: Spontaneous
  Country: US (occurrence: US)
  Receive Date: 20251231
  Receipt Date: 20251231
  Transmission Date: 20260117
  Serious: Yes (Hospitalization, Other)
  Sender: DR REDDYS
  Company Number: US-DRL-USA-USA/2025/12/019898

PATIENT
  Age: 37 Year
  Sex: Female

DRUGS (6)
  1. DAPTOMYCIN [Suspect]
     Active Substance: DAPTOMYCIN
     Indication: Diabetic foot infection
  2. DAPTOMYCIN [Suspect]
     Active Substance: DAPTOMYCIN
     Indication: Osteomyelitis
  3. MEROPENEM [Concomitant]
     Active Substance: MEROPENEM
     Indication: Osteomyelitis
  4. MEROPENEM [Concomitant]
     Active Substance: MEROPENEM
     Indication: Diabetic foot infection
  5. CLINDAMYCIN [Concomitant]
     Active Substance: CLINDAMYCIN
     Indication: Osteomyelitis
  6. CLINDAMYCIN [Concomitant]
     Active Substance: CLINDAMYCIN
     Indication: Diabetic foot infection

REACTIONS (1)
  - Eosinophilic pneumonia [Recovered/Resolved]
